FAERS Safety Report 5258169-5 (Version None)
Quarter: 2007Q1

REPORT INFORMATION
  Report Type: 
  Country: None (occurrence: None)
  Receive Date: 20070307
  Receipt Date: 20070223
  Transmission Date: 20070707
  Serious: Yes (Other)
  Sender: FDA-Public Use
  Company Number: JP-PFIZER INC-2007016427

PATIENT
  Age: 90 Year
  Sex: Female

DRUGS (1)
  1. ATARAX [Suspect]
     Indication: PRURITUS
     Dosage: DAILY DOSE:25MG
     Route: 048
     Dates: start: 20070218, end: 20070221

REACTIONS (2)
  - AGGRESSION [None]
  - PERSECUTORY DELUSION [None]
